FAERS Safety Report 8615738 (Version 2)
Quarter: 2012Q4

REPORT INFORMATION
  Report Type: 
  Country: US (occurrence: US)
  Receive Date: 20120614
  Receipt Date: 20120906
  Transmission Date: 20130627
  Serious: Yes (Hospitalization)
  Sender: FDA-Public Use
  Company Number: US-AMGEN-USASP2012028637

PATIENT
  Age: 69 Year
  Sex: Female

DRUGS (11)
  1. PROLIA [Suspect]
     Indication: OSTEOPOROSIS POSTMENOPAUSAL
     Dosage: 60 mg, q6mo
     Dates: start: 20120423
  2. PROCARDIA                          /00340701/ [Concomitant]
     Dosage: UNK
  3. DYAZIDE [Concomitant]
     Dosage: UNK
  4. THYROID THERAPY [Concomitant]
     Dosage: UNK
  5. ZOCOR [Concomitant]
     Dosage: UNK
  6. CITALOPRAM [Concomitant]
     Dosage: UNK
  7. OXYCODONE [Concomitant]
     Dosage: UNK
  8. XANAX [Concomitant]
     Dosage: UNK
  9. VITAMIN D /00107901/ [Concomitant]
     Dosage: UNK
  10. CALCIUM [Concomitant]
     Dosage: UNK
  11. CELEXA                             /00582602/ [Concomitant]
     Dosage: UNK

REACTIONS (11)
  - Hepatitis A [Unknown]
  - Liver function test abnormal [Recovered/Resolved]
  - Malaise [Unknown]
  - Nausea [Unknown]
  - Abdominal pain upper [Unknown]
  - Dizziness [Unknown]
  - Gastritis [Unknown]
  - Diverticulum [Unknown]
  - Haemorrhoids [Unknown]
  - Hypertension [Unknown]
  - Pain [Unknown]
